FAERS Safety Report 15082357 (Version 1)
Quarter: 2018Q2

REPORT INFORMATION
  Report Type: Spontaneous
  Country: US (occurrence: US)
  Receive Date: 20180628
  Receipt Date: 20180628
  Transmission Date: 20180711
  Serious: No
  Sender: FDA-Public Use
  Company Number: US-SA-2018SA142408

PATIENT
  Sex: Male

DRUGS (1)
  1. PLAVIX [Suspect]
     Active Substance: CLOPIDOGREL BISULFATE
     Dosage: 75 MG
     Route: 065
     Dates: start: 201801

REACTIONS (5)
  - Rash [Unknown]
  - Peripheral swelling [Unknown]
  - Insomnia [Unknown]
  - Pruritus [Unknown]
  - Erythema [Unknown]
